FAERS Safety Report 25115490 (Version 5)
Quarter: 2025Q4

REPORT INFORMATION
  Report Type: Report from Study
  Country: EU (occurrence: EU)
  Receive Date: 20250324
  Receipt Date: 20251112
  Transmission Date: 20260118
  Serious: Yes (Hospitalization, Other)
  Sender: ABBVIE
  Company Number: EU-ABBVIE-6144808

PATIENT
  Age: 71 Year
  Sex: Male

DRUGS (5)
  1. FOSCARBIDOPA\FOSLEVODOPA [Suspect]
     Active Substance: FOSCARBIDOPA\FOSLEVODOPA
     Indication: Parkinson^s disease
     Dosage: CRN: 0.19 ML/H, CR: 0.23 ML/H, CRH: 0.28 ML/H, ED: 0.15 ML, DAY 1
     Route: 058
     Dates: start: 20250218, end: 20250219
  2. FOSCARBIDOPA\FOSLEVODOPA [Suspect]
     Active Substance: FOSCARBIDOPA\FOSLEVODOPA
     Dosage: CRN: 0.19 ML/H, CR: 0.21 ML/H, CRH: 0.25 ML/H, ED: 0.15 ML
     Route: 058
     Dates: start: 20250219, end: 20250219
  3. FOSCARBIDOPA\FOSLEVODOPA [Suspect]
     Active Substance: FOSCARBIDOPA\FOSLEVODOPA
     Dosage: ED: 0.15 ML, CRN: 0.20 ML/H, CR: 0.21 ML/H, CRH: 0.23 ML/H?LAST ADMIN DATE: 2025
     Route: 058
     Dates: start: 20250219
  4. FOSCARBIDOPA\FOSLEVODOPA [Suspect]
     Active Substance: FOSCARBIDOPA\FOSLEVODOPA
     Dosage: CRN: 0.20 ML/H; CR 0.22 ML/H; CRH 0.24 ML/H, ED: 0.15 ML. FIRST ADMIN AND LAST ADMIN DATE: 2025.
     Route: 058
  5. FOSCARBIDOPA\FOSLEVODOPA [Suspect]
     Active Substance: FOSCARBIDOPA\FOSLEVODOPA
     Dosage: CRN: 0.16 ML/H; CR 0.18 ML/H; CRH: 0.20 ML/H; ED 0.15 ML/H. FIRST ADMIN DATE: 2025.
     Route: 058

REACTIONS (8)
  - Hypokinesia [Not Recovered/Not Resolved]
  - Musculoskeletal stiffness [Not Recovered/Not Resolved]
  - Adrenal disorder [Not Recovered/Not Resolved]
  - Psychotic disorder [Recovered/Resolved]
  - On and off phenomenon [Not Recovered/Not Resolved]
  - Immobile [Not Recovered/Not Resolved]
  - Hyperkinesia [Not Recovered/Not Resolved]
  - Renal disorder [Not Recovered/Not Resolved]

NARRATIVE: CASE EVENT DATE: 20250101
